FAERS Safety Report 9904887 (Version 4)
Quarter: 2014Q4

REPORT INFORMATION
  Report Type: Spontaneous
  Country: US (occurrence: US)
  Receive Date: 20140218
  Receipt Date: 20141201
  Transmission Date: 20150529
  Serious: Yes (Hospitalization, Other)
  Sender: FDA-Public Use
  Company Number: US-BAYER-2014-025095

PATIENT
  Age: 26 Year
  Sex: Female
  Weight: 72.56 kg

DRUGS (3)
  1. MIRENA [Suspect]
     Active Substance: LEVONORGESTREL
     Indication: CONTRACEPTION
     Dosage: 20 MCG/24HR, CONT
     Route: 015
     Dates: start: 20101118, end: 20130810
  2. TORADOL [Concomitant]
     Active Substance: KETOROLAC TROMETHAMINE
  3. LORTAB [Concomitant]
     Active Substance: ACETAMINOPHEN\HYDROCODONE BITARTRATE

REACTIONS (15)
  - Infertility female [Not Recovered/Not Resolved]
  - Emotional distress [None]
  - Adnexa uteri pain [None]
  - Device issue [None]
  - Depression [None]
  - Anxiety [None]
  - Uterine perforation [None]
  - Genital haemorrhage [None]
  - Intra-uterine contraceptive device removal [None]
  - Loss of libido [None]
  - Injury [None]
  - Abdominal pain lower [None]
  - Drug ineffective [None]
  - Pregnancy with contraceptive device [None]
  - Scar [None]

NARRATIVE: CASE EVENT DATE: 201208
